FAERS Safety Report 8450071-0 (Version None)
Quarter: 2012Q2

REPORT INFORMATION
  Report Type: 
  Country: None (occurrence: None)
  Receive Date: 20120620
  Receipt Date: 20120612
  Transmission Date: 20120825
  Serious: Yes (Other)
  Sender: FDA-Public Use
  Company Number: US-SANOFI-AVENTIS-2012SA042229

PATIENT
  Age: 63 Year
  Sex: Male

DRUGS (3)
  1. LANTUS [Suspect]
     Indication: TYPE 1 DIABETES MELLITUS
     Dosage: DOSE:37 UNIT(S)
     Route: 058
  2. HUMALOG [Suspect]
  3. SOLOSTAR [Suspect]
     Indication: TYPE 1 DIABETES MELLITUS

REACTIONS (1)
  - EYE OPERATION [None]
